FAERS Safety Report 20978557 (Version 1)
Quarter: 2022Q2

REPORT INFORMATION
  Report Type: Spontaneous
  Country: US (occurrence: US)
  Receive Date: 20220618
  Receipt Date: 20220618
  Transmission Date: 20220721
  Serious: No
  Sender: FDA-Public Use
  Company Number: US-SANOFI-01148617

PATIENT
  Age: 21 Year
  Sex: Female

DRUGS (1)
  1. ADMELOG [Suspect]
     Active Substance: INSULIN LISPRO
     Indication: Type 1 diabetes mellitus
     Dosage: DRUG STRUCTURE DOSAGE : 11 UNIT PER EVERY CARB DRUG INTERVAL DOSAGE : 4 TIMES A DAY DRUG TREATMENT D

REACTIONS (1)
  - Drug ineffective [Unknown]
